FAERS Safety Report 6730894-6 (Version None)
Quarter: 2010Q2

REPORT INFORMATION
  Report Type: 
  Country: None (occurrence: None)
  Receive Date: 20100518
  Receipt Date: 20100506
  Transmission Date: 20101027
  Serious: Yes (Other)
  Sender: FDA-Public Use
  Company Number: PHHY2010US29620

PATIENT
  Sex: Female

DRUGS (2)
  1. EXJADE [Suspect]
     Indication: LYMPHATIC SYSTEM NEOPLASM
     Dosage: 1500 MG, QD
     Route: 048
  2. EXJADE [Suspect]
     Indication: HAEMATOLOGICAL MALIGNANCY

REACTIONS (3)
  - MALAISE [None]
  - PAIN [None]
  - PNEUMONIA [None]
